FAERS Safety Report 7616795-X (Version None)
Quarter: 2011Q3

REPORT INFORMATION
  Report Type: 
  Country: None (occurrence: None)
  Receive Date: 20110718
  Receipt Date: 20110707
  Transmission Date: 20111222
  Serious: Yes (Other)
  Sender: FDA-Public Use
  Company Number: US-BIOGENIDEC-2011BI025544

PATIENT
  Age: 38 Year
  Sex: Female

DRUGS (3)
  1. AVONEX [Suspect]
     Indication: MULTIPLE SCLEROSIS
     Route: 030
     Dates: start: 20060511, end: 20070601
  2. AVONEX [Suspect]
     Route: 030
     Dates: start: 20080201, end: 20100201
  3. AVONEX [Suspect]
     Route: 030
     Dates: start: 20110201

REACTIONS (1)
  - CAESAREAN SECTION [None]
